FAERS Safety Report 8222056-0 (Version None)
Quarter: 2012Q1

REPORT INFORMATION
  Report Type: 
  Country: None (occurrence: None)
  Receive Date: 20120320
  Receipt Date: 20120319
  Transmission Date: 20120608
  Serious: Yes (Death)
  Sender: FDA-Public Use
  Company Number: DE-BAYER-2012-026867

PATIENT
  Sex: Female

DRUGS (1)
  1. AVELOX [Suspect]
     Route: 042

REACTIONS (1)
  - DEATH [None]
